FAERS Safety Report 5122327-0 (Version None)
Quarter: 2006Q4

REPORT INFORMATION
  Report Type: 
  Country: None (occurrence: None)
  Receive Date: 20061003
  Receipt Date: 20060919
  Transmission Date: 20070319
  Serious: Yes (Hospitalization)
  Sender: FDA-Public Use
  Company Number: 2006PV021591

PATIENT
  Age: 60 Year
  Sex: Male

DRUGS (1)
  1. BYETTA [Suspect]
     Dosage: SC
     Route: 058
     Dates: start: 20060501

REACTIONS (1)
  - CHOLECYSTECTOMY [None]
